FAERS Safety Report 6316888-3 (Version None)
Quarter: 2009Q3

REPORT INFORMATION
  Report Type: 
  Country: None (occurrence: None)
  Receive Date: 20090820
  Receipt Date: 20090811
  Transmission Date: 20100115
  Serious: Yes (Death, Other)
  Sender: FDA-Public Use
  Company Number: US-BAXTER-2009BH001158

PATIENT
  Age: 65 Year
  Sex: Female

DRUGS (10)
  1. HEPARIN SODIUM INJECTION [Suspect]
     Indication: DRUG USE FOR UNKNOWN INDICATION
     Route: 065
     Dates: start: 20060301
  2. HEPARIN SODIUM INJECTION [Suspect]
     Route: 065
     Dates: start: 20060301
  3. HEPARIN SODIUM INJECTION [Suspect]
     Route: 065
     Dates: start: 20060601, end: 20060701
  4. HEPARIN SODIUM INJECTION [Suspect]
     Route: 065
     Dates: start: 20060601, end: 20060701
  5. HEPARIN SODIUM INJECTION [Suspect]
     Route: 065
     Dates: start: 20060724
  6. HEPARIN SODIUM INJECTION [Suspect]
     Route: 065
     Dates: start: 20060724
  7. FOLBEE [Concomitant]
     Route: 065
  8. MEGESTROL ACETATE [Concomitant]
     Route: 065
  9. ZINC SULFATE [Concomitant]
     Route: 065
  10. ANTIBIOTICS [Concomitant]
     Indication: HAEMODIALYSIS
     Route: 065

REACTIONS (21)
  - ABDOMINAL PAIN [None]
  - ANAEMIA [None]
  - ASTHENIA [None]
  - BLEEDING TIME PROLONGED [None]
  - BLOOD PRESSURE DECREASED [None]
  - CARDIAC DISORDER [None]
  - CHEST PAIN [None]
  - DEATH [None]
  - DIZZINESS [None]
  - DYSPNOEA [None]
  - ERYTHEMA [None]
  - HEADACHE [None]
  - HEART RATE INCREASED [None]
  - HYPERHIDROSIS [None]
  - HYPERSENSITIVITY [None]
  - NAUSEA [None]
  - OEDEMA PERIPHERAL [None]
  - PHARYNGEAL OEDEMA [None]
  - SHOCK [None]
  - SKIN REACTION [None]
  - SYNCOPE [None]
